FAERS Safety Report 20984285 (Version 1)
Quarter: 2022Q2

REPORT INFORMATION
  Report Type: Spontaneous
  Country: US (occurrence: None)
  Receive Date: 20220621
  Receipt Date: 20220621
  Transmission Date: 20220721
  Serious: No
  Sender: FDA-Public Use
  Company Number: US-ROCHE-2946474

PATIENT

DRUGS (1)
  1. TECENTRIQ [Suspect]
     Active Substance: ATEZOLIZUMAB
     Indication: Small cell lung cancer
     Dosage: IN 250 NORMAL SALINE OVER 1 HOUR
     Route: 042

REACTIONS (1)
  - Injection site induration [Unknown]

NARRATIVE: CASE EVENT DATE: 20211027
